FAERS Safety Report 12388294 (Version 1)
Quarter: 2016Q2

REPORT INFORMATION
  Report Type: Report from Study
  Country: BR (occurrence: BR)
  Receive Date: 20160520
  Receipt Date: 20160520
  Transmission Date: 20160815
  Serious: Yes (Hospitalization)
  Sender: FDA-Public Use
  Company Number: PHHY2015BR107041

PATIENT
  Sex: Female
  Weight: 50 kg

DRUGS (3)
  1. EXJADE [Suspect]
     Active Substance: DEFERASIROX
     Indication: SICKLE CELL ANAEMIA
     Dosage: 1 DF OF 500 MG (30 MG/KG DAILY), TID
     Route: 048
     Dates: start: 20140820
  2. EXJADE [Suspect]
     Active Substance: DEFERASIROX
     Dosage: 1 DF (10 MG/KG), QHS
     Route: 048
  3. EXJADE [Suspect]
     Active Substance: DEFERASIROX
     Dosage: 20 MG/KG, QD (1 DF OF 500 MG IN THE MORNING AND 1 DF OF 500 MG AT NIGHT)
     Route: 048
     Dates: end: 20160314

REACTIONS (17)
  - Pneumonia [Unknown]
  - Sickle cell anaemia with crisis [Unknown]
  - Full blood count decreased [Unknown]
  - Muscle spasms [Recovering/Resolving]
  - Diarrhoea [Recovering/Resolving]
  - Weight decreased [Unknown]
  - Pain [Unknown]
  - Nausea [Recovering/Resolving]
  - Serum ferritin increased [Unknown]
  - Haemoglobin decreased [Unknown]
  - Eating disorder [Unknown]
  - Movement disorder [Unknown]
  - Cough [Unknown]
  - Arthralgia [Unknown]
  - Pyrexia [Unknown]
  - Chest pain [Unknown]
  - Headache [Unknown]

NARRATIVE: CASE EVENT DATE: 2015
